FAERS Safety Report 14061813 (Version 1)
Quarter: 2017Q4

REPORT INFORMATION
  Report Type: Spontaneous
  Country: US (occurrence: US)
  Receive Date: 20171009
  Receipt Date: 20171009
  Transmission Date: 20180321
  Serious: No
  Sender: FDA-Public Use
  Company Number: US-LUPIN PHARMACEUTICALS INC.-2017-03699

PATIENT
  Sex: Male
  Weight: 51.7 kg

DRUGS (1)
  1. DULOXETINE DELAYED-RELEASE CAPSULES 20 MG [Suspect]
     Active Substance: DULOXETINE
     Indication: PAIN
     Dosage: 20 MG, QHS TO BID
     Route: 048

REACTIONS (3)
  - Diarrhoea [Recovered/Resolved]
  - Abdominal pain [Unknown]
  - Drug hypersensitivity [Unknown]
